FAERS Safety Report 5161628-7 (Version None)
Quarter: 2006Q4

REPORT INFORMATION
  Report Type: 
  Country: None (occurrence: None)
  Receive Date: 20061121
  Receipt Date: 20061108
  Transmission Date: 20070319
  Serious: Yes (Life-Threatening, Hospitalization)
  Sender: FDA-Public Use
  Company Number: 2005054149

PATIENT
  Age: 47 Year
  Sex: Male

DRUGS (11)
  1. ZYVOX [Suspect]
     Indication: STAPHYLOCOCCAL INFECTION
     Dosage: 1200 MG (600 MG, 2 IN 1 D), INTRAVENOUS
     Route: 042
     Dates: start: 20041017, end: 20041020
  2. ATENOLOL [Suspect]
     Dosage: ORAL
     Route: 048
  3. OMEPRAZOLE [Suspect]
     Dosage: ORAL
     Route: 048
  4. AMISULPRIDE (AMISULPRIDE) [Suspect]
     Dosage: ORAL
     Route: 048
  5. DOXAZOSIN (DOXAZOSIN) [Suspect]
     Dosage: ORAL
     Route: 048
  6. FENTANYL [Suspect]
     Dosage: INTRAVENOUS
     Route: 042
  7. HALOPERIDOL [Suspect]
     Indication: DRUG USE FOR UNKNOWN INDICATION
  8. PANTOPRAZOLE SODIUM [Suspect]
     Dosage: INTRAVENOUS
     Route: 042
  9. PROCYCLIDINE HYDROCHLORIDE 2MG TAB [Suspect]
     Dosage: ORAL
     Route: 048
  10. RIFAMPICIN [Suspect]
     Dosage: INTRAVENOUS
     Route: 042
  11. ZOPICLONE (ZOPICLONE) [Suspect]

REACTIONS (2)
  - BLOOD PRESSURE SYSTOLIC INCREASED [None]
  - DRUG INTERACTION [None]
